FAERS Safety Report 15734122 (Version 2)
Quarter: 2019Q4

REPORT INFORMATION
  Report Type: Spontaneous
  Country: ES (occurrence: ES)
  Receive Date: 20181218
  Receipt Date: 20191030
  Transmission Date: 20200122
  Serious: Yes (Hospitalization)
  Sender: FDA-Public Use
  Company Number: ES-SUN PHARMACEUTICAL INDUSTRIES LTD-2018RR-193686

PATIENT
  Age: 91 Year
  Sex: Female

DRUGS (12)
  1. ALLOPURINOL. [Suspect]
     Active Substance: ALLOPURINOL
     Indication: HYPERURICAEMIA
     Dosage: 1/2 CP/24H X 1 MES SEGUIDO DE 1 CP DIA DOSIS UNIDAD FRECUENCIA: 50 MG-MILIGRAMOS DOSIS POR
     Route: 048
     Dates: start: 20150527, end: 20150628
  2. MIFLONIDE 400 MICROGRAMOS POLVO PARA INHALACION (CAPSULA DURA), 1 I [Concomitant]
     Indication: CHRONIC OBSTRUCTIVE PULMONARY DISEASE
     Dosage: 1-0-1 || DOSIS UNIDAD FRECUENCIA: 800 MICROG-MICROGRAMOS || DOSIS POR TOMA: 400 MICROG-MICROGRAMO
     Route: 055
     Dates: start: 201412
  3. TRANKIMAZIN 0,50 MG COMPRIMIDOS , 30 COMPRIMIDOS [Concomitant]
     Active Substance: ALPRAZOLAM
     Indication: INSOMNIA
     Dosage: 1-0-1 DOSIS UNIDAD FRECUENCIA: 1 MG-MILIGRAMOS DOSIS POR TOMA: 0.5 MG-MILIGRAMOS
     Route: 048
     Dates: start: 201309
  4. NOLOTIL 575 MG CAPSULAS DURAS, 20 CAPSULAS [Concomitant]
     Indication: PAIN
     Dosage: A DEMANDA UNIDAD DE FRECUENCIA: 0 CUANDO SEA NECESARIO AS NECESSARY
     Route: 048
     Dates: start: 201406
  5. FUROSEMIDA [Concomitant]
     Active Substance: FUROSEMIDE
     Indication: HYPERTENSION
     Dosage: 1-0-0 DOSIS UNIDAD FRECUENCIA: 40 MG-MILIGRAMOS || DOSIS POR TOMA: 40 MG-MILIGRAMOS
     Route: 048
     Dates: start: 20150610
  6. PARACETAMOL [Concomitant]
     Active Substance: ACETAMINOPHEN
     Indication: PROPHYLAXIS
     Dosage: A DEMANDA || UNIDAD DE FRECUENCIA: 0 CUANDO SEA NECESARIO () ; AS NECESSARY
     Route: 048
     Dates: start: 2012
  7. RIVOTRIL [Concomitant]
     Active Substance: CLONAZEPAM
     Indication: INSOMNIA
     Dosage: 0-0-1 DOSIS UNIDAD FRECUENCIA: 0.5 MG-MILIGRAMOS  DOSIS POR TOMA: 0.5 MG-MILIGRAMOS
     Route: 048
     Dates: start: 201309
  8. PROPRANOLOL [Concomitant]
     Active Substance: PROPRANOLOL HYDROCHLORIDE
     Indication: HYPERTENSION
     Dosage: 1-0-1 DOSIS UNIDAD FRECUENCIA: 20 MG-MILIGRAMOS || DOSIS POR TOMA: 10 MG-MILIGRAMOS
     Route: 048
     Dates: start: 20141204
  9. LUMIGAN 0,3 MG/ML COLIRIO EN SOLUCION EN ENVASE UNIDOSIS , 30 ENVAS [Concomitant]
     Indication: GLAUCOMA
     Dosage: ()
     Route: 047
     Dates: start: 2013
  10. ADIRO 100 MG COMPRIMIDOS GASTRORRESISTENTES EFG , 30 COMPRIMIDOS [Concomitant]
     Active Substance: ASPIRIN
     Indication: PRODUCT USED FOR UNKNOWN INDICATION
     Dosage: 1 CP DOSIS UNIDAD FRECUENCIA: 100 MG-MILIGRAMOS || DOSIS POR TOMA: 100 MG-MILIGRAMOS
     Route: 048
     Dates: start: 2009
  11. OMEPRAZOL [Concomitant]
     Active Substance: OMEPRAZOLE
     Indication: PROPHYLAXIS
     Dosage: 1 CP || DOSIS UNIDAD FRECUENCIA: 20 MG-MILIGRAMOS || DOSIS POR TOMA: 20 MG-MILIGRAMOS
     Route: 048
     Dates: start: 201409
  12. FORADIL AEROLIZER 12 MICROGRAMOS POLVO PARA INHALACION (CAPSULA DUR [Concomitant]
     Indication: CHRONIC OBSTRUCTIVE PULMONARY DISEASE
     Dosage: ()
     Route: 055
     Dates: start: 2012

REACTIONS (1)
  - Drug reaction with eosinophilia and systemic symptoms [Recovered/Resolved]

NARRATIVE: CASE EVENT DATE: 20150627
